FAERS Safety Report 8389136-0 (Version None)
Quarter: 2012Q2

REPORT INFORMATION
  Report Type: 
  Country: None (occurrence: None)
  Receive Date: 20120528
  Receipt Date: 20120523
  Transmission Date: 20120825
  Serious: Yes (Other)
  Sender: FDA-Public Use
  Company Number: PHHY2012HU044042

PATIENT
  Sex: Female

DRUGS (5)
  1. LETROZOLE [Suspect]
     Indication: BREAST CANCER
     Dosage: 2.5 MG, DAILY
     Dates: start: 20090521
  2. COVEREX [Concomitant]
     Dosage: UNK
     Dates: start: 20080101
  3. DEPRESSAN [Concomitant]
     Dosage: UNK
     Dates: start: 20080101
  4. CHEMOTHERAPEUTICS NOS [Concomitant]
  5. GLIMEPIRIDE [Concomitant]
     Dosage: UNK
     Dates: start: 20080101

REACTIONS (6)
  - NEOPLASM MALIGNANT [None]
  - METASTASES TO ADRENALS [None]
  - BONE PAIN [None]
  - METASTASES TO BONE [None]
  - NEOPLASM PROGRESSION [None]
  - PULMONARY FIBROSIS [None]
